FAERS Safety Report 4285185-2 (Version None)
Quarter: 2004Q1

REPORT INFORMATION
  Report Type: 
  Country: None (occurrence: None)
  Receive Date: 20040203
  Receipt Date: 20040203
  Transmission Date: 20041129
  Serious: Yes (Hospitalization)
  Sender: FDA-Public Use
  Company Number: None

PATIENT
  Sex: Female

DRUGS (14)
  1. BUSULFAN [Suspect]
     Indication: ACUTE MYELOID LEUKAEMIA
     Dosage: 46 MG PO Q6 DOSES #1-11, 52 MG PO Q6 DOSES #12-16
     Route: 048
  2. CYCLOPHOSPHAMIDE [Suspect]
     Indication: ACUTE MYELOID LEUKAEMIA
     Dosage: 2252 MG IV X 3 DOSES
     Route: 042
  3. ACYCLOVIR [Concomitant]
  4. CHLORTRIMAZOLE [Concomitant]
  5. DIBUCANE [Concomitant]
  6. DIPHENHYDRAMINE HCL [Concomitant]
  7. FLUCONAZOLE [Concomitant]
  8. FLORIDE GEL [Concomitant]
  9. GLUTAMINE [Concomitant]
  10. LORAZEPAM [Concomitant]
  11. LEVOTHYROXINE SODIUM [Concomitant]
  12. MULTI-VITAMIN [Concomitant]
  13. TACROLIMUS [Concomitant]
  14. TOCEPHEROL [Concomitant]

REACTIONS (1)
  - CYSTITIS HAEMORRHAGIC [None]
